FAERS Safety Report 6190443-0 (Version None)
Quarter: 2009Q2

REPORT INFORMATION
  Report Type: 
  Country: None (occurrence: None)
  Receive Date: 20090513
  Receipt Date: 20090513
  Transmission Date: 20091009
  Serious: Yes (Hospitalization)
  Sender: FDA-Public Use
  Company Number: None

PATIENT
  Age: 65 Year
  Sex: Female
  Weight: 90.7194 kg

DRUGS (1)
  1. HUMIRA [Suspect]
     Indication: RHEUMATOID ARTHRITIS
     Dosage: 40 MG/0.8 ML EVERY TWO WEEKS OTIC
     Route: 001
     Dates: start: 20080504, end: 20080625

REACTIONS (6)
  - CONFUSIONAL STATE [None]
  - DEMENTIA [None]
  - DIABETES MELLITUS INADEQUATE CONTROL [None]
  - FATIGUE [None]
  - HYPOGLYCAEMIC COMA [None]
  - PAIN [None]
